FAERS Safety Report 12582712 (Version 1)
Quarter: 2016Q3

REPORT INFORMATION
  Report Type: Spontaneous
  Country: US (occurrence: None)
  Receive Date: 20160721
  Receipt Date: 20160721
  Transmission Date: 20161109
  Serious: Yes (Hospitalization)
  Sender: FDA-Public Use
  Company Number: None

PATIENT
  Age: 39 Year
  Sex: Female
  Weight: 95 kg

DRUGS (1)
  1. OXALIPLATIN SANDOZ [Suspect]
     Active Substance: OXALIPLATIN
     Indication: COLORECTAL CANCER METASTATIC
     Route: 040

REACTIONS (4)
  - Autoimmune disorder [None]
  - Malaise [None]
  - Haemoptysis [None]
  - Platelet count decreased [None]

NARRATIVE: CASE EVENT DATE: 20160627
